FAERS Safety Report 5935020-9 (Version None)
Quarter: 2008Q4

REPORT INFORMATION
  Report Type: 
  Country: None (occurrence: None)
  Receive Date: 20081028
  Receipt Date: 20081017
  Transmission Date: 20090506
  Serious: Yes (Hospitalization)
  Sender: FDA-Public Use
  Company Number: WAES 0804BEL00005

PATIENT
  Age: 41 Year
  Sex: Male

DRUGS (7)
  1. ISENTRESS [Suspect]
     Indication: HIV INFECTION
     Dosage: 400 MG/BID PO
     Route: 048
     Dates: start: 20071116
  2. EPIVIR [Concomitant]
  3. NORVIR [Concomitant]
  4. PREZISTA [Concomitant]
  5. VIREAD [Concomitant]
  6. ETRAVIRINE [Concomitant]
  7. OMEGA-3 MARINE TRIGLYCERIDES [Concomitant]

REACTIONS (7)
  - ANOREXIA [None]
  - ARTHRALGIA [None]
  - HEAD INJURY [None]
  - HEADACHE [None]
  - PARAESTHESIA [None]
  - RASH [None]
  - SYPHILIS [None]
